FAERS Safety Report 5501334-X (Version None)
Quarter: 2007Q4

REPORT INFORMATION
  Report Type: 
  Country: None (occurrence: None)
  Receive Date: 20071026
  Receipt Date: 20071019
  Transmission Date: 20080405
  Serious: Yes (Life-Threatening)
  Sender: FDA-Public Use
  Company Number: TPA2007A02113

PATIENT
  Age: 74 Year
  Sex: Male
  Weight: 84.369 kg

DRUGS (15)
  1. PIOGLITAZONE HCL [Suspect]
     Indication: CARDIOVASCULAR EVENT PROPHYLAXIS
     Dosage: 1 IN 1 D, PER ORAL; 1 IN 1 D, PER ORAL; 1 IN 1 D, PER ORAL
     Route: 048
     Dates: start: 20070228, end: 20070405
  2. PIOGLITAZONE HCL [Suspect]
     Indication: CEREBROVASCULAR ACCIDENT PROPHYLAXIS
     Dosage: 1 IN 1 D, PER ORAL; 1 IN 1 D, PER ORAL; 1 IN 1 D, PER ORAL
     Route: 048
     Dates: start: 20070228, end: 20070405
  3. PIOGLITAZONE HCL [Suspect]
     Indication: CARDIOVASCULAR EVENT PROPHYLAXIS
     Dosage: 1 IN 1 D, PER ORAL; 1 IN 1 D, PER ORAL; 1 IN 1 D, PER ORAL
     Route: 048
     Dates: start: 20070406, end: 20070506
  4. PIOGLITAZONE HCL [Suspect]
     Indication: CEREBROVASCULAR ACCIDENT PROPHYLAXIS
     Dosage: 1 IN 1 D, PER ORAL; 1 IN 1 D, PER ORAL; 1 IN 1 D, PER ORAL
     Route: 048
     Dates: start: 20070406, end: 20070506
  5. PIOGLITAZONE HCL [Suspect]
     Indication: CARDIOVASCULAR EVENT PROPHYLAXIS
     Dosage: 1 IN 1 D, PER ORAL; 1 IN 1 D, PER ORAL; 1 IN 1 D, PER ORAL
     Route: 048
     Dates: start: 20070507, end: 20070926
  6. PIOGLITAZONE HCL [Suspect]
     Indication: CEREBROVASCULAR ACCIDENT PROPHYLAXIS
     Dosage: 1 IN 1 D, PER ORAL; 1 IN 1 D, PER ORAL; 1 IN 1 D, PER ORAL
     Route: 048
     Dates: start: 20070507, end: 20070926
  7. ZYPREXA [Concomitant]
  8. ASPIRIN [Concomitant]
  9. CALCIUM (CALCIUM) [Concomitant]
  10. FOLATE (FOLIC ACID) [Concomitant]
  11. HYDROCHLOROTHIAZIDE [Concomitant]
  12. CYMBALTA [Concomitant]
  13. LISINOPRIL [Concomitant]
  14. LIPITOR [Concomitant]
  15. SUCRALFATE [Concomitant]

REACTIONS (2)
  - HYPOGLYCAEMIA [None]
  - LOSS OF CONSCIOUSNESS [None]
